FAERS Safety Report 8481609-5 (Version None)
Quarter: 2012Q3

REPORT INFORMATION
  Report Type: 
  Country: None (occurrence: None)
  Receive Date: 20120702
  Receipt Date: 20120626
  Transmission Date: 20120928
  Serious: Yes (Death, Hospitalization)
  Sender: FDA-Public Use
  Company Number: DE-PFIZER INC-2012072082

PATIENT
  Age: 70 Year
  Sex: Male
  Weight: 74 kg

DRUGS (6)
  1. BISOPROLOL [Concomitant]
     Dosage: 5 MG, 1X/DAY
  2. LEVOTHYROXINE SODIUM [Concomitant]
     Dosage: 100 UG, 1X/DAY
  3. FELOCOR [Concomitant]
     Dosage: 5 MG, 1X/DAY
  4. SUNITINIB MALATE [Suspect]
     Indication: RENAL CANCER
     Dosage: 50 MG, 1X/DAY
     Route: 048
     Dates: start: 20120210, end: 20120221
  5. AMITRIPTYLINE HCL [Concomitant]
     Dosage: UNK
  6. RAMILICH COMP [Concomitant]
     Dosage: 5 / 25 DAILY

REACTIONS (1)
  - PNEUMONIA [None]
